FAERS Safety Report 19963725 (Version 1)
Quarter: 2021Q4

REPORT INFORMATION
  Report Type: Spontaneous
  Country: US (occurrence: US)
  Receive Date: 20211018
  Receipt Date: 20211018
  Transmission Date: 20220303
  Serious: No
  Sender: FDA-Public Use
  Company Number: None

PATIENT
  Age: 30 Year
  Sex: Female
  Weight: 67.5 kg

DRUGS (2)
  1. FLONASE ALLERGY RELIEF [Suspect]
     Active Substance: FLUTICASONE PROPIONATE
     Indication: Sinus disorder
     Dosage: ?          QUANTITY:2 SPRAY(S);OTHER ROUTE:SPRAYED IN EACH NOSTRIL
     Dates: start: 20210929, end: 20211012
  2. AUROVELA BIRTH CONTROL PILLS [Concomitant]

REACTIONS (11)
  - Headache [None]
  - Nausea [None]
  - Decreased appetite [None]
  - Fatigue [None]
  - Throat tightness [None]
  - Pharyngeal swelling [None]
  - Palpitations [None]
  - Palpitations [None]
  - Palpitations [None]
  - Anxiety [None]
  - Chest discomfort [None]

NARRATIVE: CASE EVENT DATE: 20211013
